FAERS Safety Report 20286390 (Version 2)
Quarter: 2022Q1

REPORT INFORMATION
  Report Type: Spontaneous
  Country: US (occurrence: US)
  Receive Date: 20220103
  Receipt Date: 20220105
  Transmission Date: 20220423
  Serious: No
  Sender: FDA-Public Use
  Company Number: US-BoehringerIngelheim-2022-BI-146475

PATIENT
  Age: 68 Year
  Sex: Female

DRUGS (4)
  1. ESTROGENS [Concomitant]
     Active Substance: ESTROGENS
     Indication: Urinary tract infection
  2. RANITIDINE [Concomitant]
     Active Substance: RANITIDINE
     Indication: Gastrooesophageal reflux disease
  3. OLODATEROL HYDROCHLORIDE\TIOTROPIUM BROMIDE MONOHYDRATE [Suspect]
     Active Substance: OLODATEROL HYDROCHLORIDE\TIOTROPIUM BROMIDE MONOHYDRATE
     Indication: Chronic obstructive pulmonary disease
     Dosage: 1 PUFF DAILY
     Route: 065
  4. OLODATEROL HYDROCHLORIDE\TIOTROPIUM BROMIDE MONOHYDRATE [Suspect]
     Active Substance: OLODATEROL HYDROCHLORIDE\TIOTROPIUM BROMIDE MONOHYDRATE
     Dosage: 2 PUFFS DAILY
     Dates: start: 20211208, end: 20211229

REACTIONS (9)
  - Urinary retention [Recovered/Resolved]
  - Nocturia [Recovered/Resolved]
  - Intentional product misuse [Recovered/Resolved]
  - Back pain [Recovering/Resolving]
  - Intentional dose omission [Unknown]
  - Headache [Recovering/Resolving]
  - Arthralgia [Recovering/Resolving]
  - Night sweats [Not Recovered/Not Resolved]
  - Dehydration [Unknown]

NARRATIVE: CASE EVENT DATE: 20211210
